FAERS Safety Report 5325386-5 (Version None)
Quarter: 2007Q2

REPORT INFORMATION
  Report Type: 
  Country: None (occurrence: None)
  Receive Date: 20070509
  Receipt Date: 20070424
  Transmission Date: 20071010
  Serious: Yes (Disabling, Other)
  Sender: FDA-Public Use
  Company Number: US019961

PATIENT
  Age: 73 Year
  Sex: Male

DRUGS (7)
  1. TRISENOX [Suspect]
     Indication: ACUTE PROMYELOCYTIC LEUKAEMIA
     Dosage: 10.05 MG QD INTRAVENOUS DRIP
     Route: 041
     Dates: start: 20061109, end: 20061115
  2. TRISENOX [Suspect]
     Indication: ACUTE PROMYELOCYTIC LEUKAEMIA
     Dosage: 10.05 MG QD INTRAVENOUS DRIP
     Route: 041
     Dates: start: 20061121, end: 20070105
  3. TRETINOIN [Concomitant]
  4. GABEXATE MESILATE [Concomitant]
  5. DALTEPARIN SODIUM [Concomitant]
  6. GABEXATE MESILATE [Concomitant]
  7. CALCIUM GLUCONATE [Concomitant]

REACTIONS (10)
  - ALTERED STATE OF CONSCIOUSNESS [None]
  - CEREBRAL HYPOPERFUSION [None]
  - CEREBRAL INFARCTION [None]
  - CONDITION AGGRAVATED [None]
  - DYSARTHRIA [None]
  - DYSPHAGIA [None]
  - ELECTROCARDIOGRAM QT PROLONGED [None]
  - HAEMODIALYSIS [None]
  - RENAL FAILURE [None]
  - RENAL IMPAIRMENT [None]
